FAERS Safety Report 8104775-X (Version None)
Quarter: 2012Q1

REPORT INFORMATION
  Report Type: 
  Country: None (occurrence: None)
  Receive Date: 20120130
  Receipt Date: 20120126
  Transmission Date: 20120608
  Serious: Yes (Other)
  Sender: FDA-Public Use
  Company Number: US-PFIZER INC-2012023293

PATIENT
  Sex: Female
  Weight: 62.13 kg

DRUGS (5)
  1. PRIMACOR [Concomitant]
     Indication: EMPHYSEMA
     Dosage: 0.5 MG, 2X/DAY
  2. DIAZEPAM [Concomitant]
     Indication: ANXIETY
     Dosage: 10 MG, 2X/DAY
     Route: 048
  3. CHANTIX [Suspect]
     Indication: SMOKING CESSATION THERAPY
     Dosage: 0.5 MG, DAILY
  4. NEXIUM [Concomitant]
     Indication: GASTROOESOPHAGEAL REFLUX DISEASE
     Dosage: 40 MG, DAILY
     Route: 048
  5. OXYCODONE [Concomitant]
     Indication: PAIN
     Dosage: 5 MG TWO TIMES IN A DAY AS NEEDED
     Route: 048

REACTIONS (1)
  - UTERINE DISORDER [None]
